FAERS Safety Report 4706016-X (Version None)
Quarter: 2005Q2

REPORT INFORMATION
  Report Type: 
  Country: None (occurrence: None)
  Receive Date: 20050208
  Receipt Date: 20050208
  Transmission Date: 20051028
  Serious: No
  Sender: FDA-Public Use
  Company Number: None

PATIENT
  Sex: Female

DRUGS (1)
  1. OXYCODONE HCL [Suspect]
     Indication: PAIN
     Dosage: ONE PO BID
     Route: 048
     Dates: start: 20040301

REACTIONS (2)
  - NAUSEA [None]
  - VOMITING [None]
